FAERS Safety Report 9494476 (Version 1)
Quarter: 2013Q3

REPORT INFORMATION
  Report Type: Spontaneous
  Country: JP (occurrence: JP)
  Receive Date: 20130903
  Receipt Date: 20130903
  Transmission Date: 20140515
  Serious: Yes (Other)
  Sender: FDA-Public Use
  Company Number: JP-ASTELLAS-2013JP008946

PATIENT
  Age: 56 Year
  Sex: Male

DRUGS (3)
  1. PROGRAF [Suspect]
     Indication: IMMUNOSUPPRESSANT DRUG THERAPY
     Route: 065
  2. CORTICOSTEROID NOS [Suspect]
     Indication: TRANSPLANT REJECTION
     Route: 065
  3. CORTICOSTEROID NOS [Suspect]
     Route: 065

REACTIONS (4)
  - Drug ineffective [Unknown]
  - Transplant rejection [Unknown]
  - Pneumatosis intestinalis [Unknown]
  - Hepatic function abnormal [Recovered/Resolved]
